FAERS Safety Report 14845221 (Version 1)
Quarter: 2018Q2

REPORT INFORMATION
  Report Type: Spontaneous
  Country: HK (occurrence: HK)
  Receive Date: 20180504
  Receipt Date: 20180504
  Transmission Date: 20180711
  Serious: Yes (Life-Threatening, Hospitalization, Other)
  Sender: FDA-Public Use
  Company Number: HK-SUN PHARMACEUTICAL INDUSTRIES LTD-2018R1-171453

PATIENT
  Sex: Male

DRUGS (3)
  1. AMITRIPTYLINE [Suspect]
     Active Substance: AMITRIPTYLINE
     Indication: PRODUCT USED FOR UNKNOWN INDICATION
     Dosage: 100 MG, DAILY
     Route: 064
  2. CHLORPHENIRAMINE. [Suspect]
     Active Substance: CHLORPHENIRAMINE
     Indication: PRODUCT USED FOR UNKNOWN INDICATION
     Dosage: 20-30 TABLETS
     Route: 064
  3. AMITRIPTYLINE [Suspect]
     Active Substance: AMITRIPTYLINE
     Indication: PRODUCT USED FOR UNKNOWN INDICATION
     Dosage: APPROXIMATELY 30-40 MG TABLETS
     Route: 064

REACTIONS (4)
  - Foetal exposure during pregnancy [Unknown]
  - Premature baby [Unknown]
  - Bradycardia foetal [Recovered/Resolved]
  - Apgar score low [Recovered/Resolved]
